FAERS Safety Report 19841586 (Version 1)
Quarter: 2021Q3

REPORT INFORMATION
  Report Type: Spontaneous
  Country: CH (occurrence: CH)
  Receive Date: 20210916
  Receipt Date: 20210916
  Transmission Date: 20211014
  Serious: Yes (Hospitalization, Other)
  Sender: FDA-Public Use
  Company Number: CH-PFIZER INC-202101150844

PATIENT
  Age: 52 Year
  Sex: Female
  Weight: 56.5 kg

DRUGS (9)
  1. ESCITALOPRAM [Suspect]
     Active Substance: ESCITALOPRAM OXALATE
     Indication: DEPRESSION
     Dosage: 20 MG
     Route: 048
     Dates: start: 20210707, end: 20210707
  2. QUETIAPINE. [Suspect]
     Active Substance: QUETIAPINE
     Dosage: 6.25 MG, 2X/DAY
     Route: 048
  3. TRAZODONE [Suspect]
     Active Substance: TRAZODONE HYDROCHLORIDE
     Indication: DEPRESSION
     Dosage: 150 MG, 1X/DAY
     Route: 048
     Dates: start: 20210501, end: 20210707
  4. ANTISTAX [ESCULOSIDE;VITIS VINIFERA LEAF] [Concomitant]
     Dosage: 2 SEPARATED DOSES
  5. BETMIGA [Concomitant]
     Active Substance: MIRABEGRON
     Dosage: 25 MG, 1X/DAY
  6. LYRICA [Suspect]
     Active Substance: PREGABALIN
     Dosage: 150 MG, 2X/DAY
     Route: 048
  7. ZOLPIDEM [Concomitant]
     Active Substance: ZOLPIDEM TARTRATE
     Dosage: 12.5 MG, 1X/DAY
  8. TEMESTA [LORAZEPAM] [Concomitant]
     Active Substance: LORAZEPAM
     Dosage: 1 MG, 2X/DAY
     Dates: start: 20210501
  9. QUETIAPINE. [Suspect]
     Active Substance: QUETIAPINE
     Dosage: 12.5 MG, 1X/DAY
     Route: 048

REACTIONS (5)
  - Condition aggravated [Unknown]
  - Neurological symptom [Unknown]
  - Encephalopathy [Unknown]
  - Urinary tract infection [Unknown]
  - Serotonin syndrome [Recovering/Resolving]

NARRATIVE: CASE EVENT DATE: 20210707
